FAERS Safety Report 15515959 (Version 1)
Quarter: 2018Q4

REPORT INFORMATION
  Report Type: Spontaneous
  Country: US (occurrence: US)
  Receive Date: 20181017
  Receipt Date: 20181017
  Transmission Date: 20190205
  Serious: No
  Sender: FDA-Public Use
  Company Number: US-PFIZER INC-2018417032

PATIENT
  Age: 14 Year
  Sex: Male
  Weight: 61.2 kg

DRUGS (1)
  1. CRIZOTINIB [Suspect]
     Active Substance: CRIZOTINIB
     Indication: INFLAMMATORY MYOFIBROBLASTIC TUMOUR
     Dosage: 250 MG, 2X/DAY
     Route: 048
     Dates: start: 2017

REACTIONS (2)
  - Gastric disorder [Unknown]
  - Gastrooesophageal reflux disease [Unknown]
